FAERS Safety Report 10283614 (Version 3)
Quarter: 2014Q4

REPORT INFORMATION
  Report Type: Spontaneous
  Country: US (occurrence: None)
  Receive Date: 20140702
  Receipt Date: 20141124
  Transmission Date: 20150528
  Serious: Yes (Hospitalization, Other)
  Sender: FDA-Public Use
  Company Number: 2013-US-004231

PATIENT
  Age: 51 Year
  Sex: Female

DRUGS (1)
  1. XYREM [Suspect]
     Active Substance: SODIUM OXYBATE
     Indication: NARCOLEPSY
     Route: 048
     Dates: start: 200911, end: 2009

REACTIONS (6)
  - Drug hypersensitivity [None]
  - Labelled drug-drug interaction medication error [None]
  - Nerve compression [None]
  - Respiratory rate decreased [None]
  - Surgery [None]
  - Somnolence [None]

NARRATIVE: CASE EVENT DATE: 201311
